FAERS Safety Report 8589943-5 (Version None)
Quarter: 2012Q3

REPORT INFORMATION
  Report Type: 
  Country: None (occurrence: None)
  Receive Date: 20120813
  Receipt Date: 19910522
  Transmission Date: 20120928
  Serious: Yes (Hospitalization)
  Sender: FDA-Public Use
  Company Number: US-ROCHE-1099260

PATIENT
  Age: 34 Year
  Sex: Male

DRUGS (1)
  1. ACTIVASE [Suspect]
     Indication: ACUTE MYOCARDIAL INFARCTION

REACTIONS (6)
  - SINUS TACHYCARDIA [None]
  - ELECTROCARDIOGRAM T WAVE PEAKED [None]
  - PALLOR [None]
  - BRADYCARDIA [None]
  - NAUSEA [None]
  - SUPRAVENTRICULAR EXTRASYSTOLES [None]
